FAERS Safety Report 24113508 (Version 3)
Quarter: 2025Q3

REPORT INFORMATION
  Report Type: Spontaneous
  Country: US (occurrence: US)
  Receive Date: 20240720
  Receipt Date: 20250909
  Transmission Date: 20251020
  Serious: No
  Sender: NOVARTIS
  Company Number: US-002147023-NVSC2024US146354

PATIENT
  Sex: Female

DRUGS (6)
  1. CLOFAZIMINE [Suspect]
     Active Substance: CLOFAZIMINE
     Indication: Mycobacterium abscessus infection
     Dosage: 100 MG, QD
     Route: 065
  2. CLARITHROMYCIN [Suspect]
     Active Substance: CLARITHROMYCIN
     Indication: Product used for unknown indication
     Route: 065
  3. AZITHROMYCIN [Suspect]
     Active Substance: AZITHROMYCIN
     Indication: Product used for unknown indication
     Route: 065
  4. TIGECYCLINE [Suspect]
     Active Substance: TIGECYCLINE
     Indication: Product used for unknown indication
     Route: 065
  5. CEFOXITIN [Suspect]
     Active Substance: CEFOXITIN SODIUM
     Indication: Product used for unknown indication
     Route: 065
  6. AMIKACIN [Suspect]
     Active Substance: AMIKACIN
     Indication: Product used for unknown indication
     Route: 065

REACTIONS (1)
  - Rash [Recovered/Resolved]
